FAERS Safety Report 6911205-X (Version None)
Quarter: 2010Q3

REPORT INFORMATION
  Report Type: 
  Country: None (occurrence: None)
  Receive Date: 20100806
  Receipt Date: 20100728
  Transmission Date: 20110219
  Serious: Yes (Hospitalization)
  Sender: FDA-Public Use
  Company Number: FR-ABBOTT-10P-056-0619871-00

PATIENT
  Sex: Female

DRUGS (2)
  1. ENANTONE 11.25 MG [Suspect]
     Indication: BREAST CANCER
     Route: 050
     Dates: start: 20080925, end: 20090930
  2. TAMOXIFEN [Suspect]
     Indication: BREAST CANCER
     Route: 048
     Dates: start: 20080925

REACTIONS (5)
  - ARTHRALGIA [None]
  - INFLAMMATION [None]
  - MUSCULOSKELETAL CHEST PAIN [None]
  - MYALGIA [None]
  - PYREXIA [None]
